FAERS Safety Report 8510181-6 (Version None)
Quarter: 2012Q3

REPORT INFORMATION
  Report Type: 
  Country: None (occurrence: None)
  Receive Date: 20120713
  Receipt Date: 20120706
  Transmission Date: 20120928
  Serious: Yes (Other)
  Sender: FDA-Public Use
  Company Number: US-US-EMD SERONO, INC.-7146293

PATIENT
  Sex: Female

DRUGS (3)
  1. REBIF [Suspect]
     Indication: MULTIPLE SCLEROSIS
     Route: 058
     Dates: start: 20120314, end: 20120421
  2. REBIF [Suspect]
     Route: 058
     Dates: start: 20120706
  3. MIRENA [Concomitant]
     Indication: CONTRACEPTION

REACTIONS (1)
  - NEPHROLITHIASIS [None]
